FAERS Safety Report 9555322 (Version 1)
Quarter: 2013Q3

REPORT INFORMATION
  Report Type: Spontaneous
  Country: US (occurrence: None)
  Receive Date: 20130816
  Receipt Date: 20130816
  Transmission Date: 20140515
  Serious: No
  Sender: FDA-Public Use
  Company Number: US-011777

PATIENT
  Age: 58 Year
  Sex: Female
  Weight: 77.11 kg

DRUGS (6)
  1. PICO-SALAX (NOT SPECIFIED) [Suspect]
     Indication: BOWEL PREPARATION
     Dates: start: 20130515, end: 20130515
  2. ZOLOFT [Concomitant]
  3. TRILAFON [Concomitant]
  4. LOSARTAN [Concomitant]
  5. GLIPIZIDE [Concomitant]
  6. ONGLYZA [Concomitant]

REACTIONS (1)
  - No adverse event [None]
